FAERS Safety Report 9724062 (Version 2)
Quarter: 2013Q4

REPORT INFORMATION
  Report Type: Spontaneous
  Country: US (occurrence: US)
  Receive Date: 20131202
  Receipt Date: 20131202
  Transmission Date: 20140711
  Serious: Yes (Other)
  Sender: FDA-Public Use
  Company Number: US-AMGEN-USASP2013072919

PATIENT
  Age: 58 Year
  Sex: Female

DRUGS (2)
  1. ENBREL [Suspect]
     Indication: PSORIATIC ARTHROPATHY
     Dosage: 50 MG, 2 TIMES/WK
     Route: 058
     Dates: start: 20130225
  2. ENBREL [Suspect]
     Indication: PSORIASIS

REACTIONS (6)
  - Urinary tract infection [Not Recovered/Not Resolved]
  - Flank pain [Not Recovered/Not Resolved]
  - Pyrexia [Recovered/Resolved]
  - Nasal ulcer [Not Recovered/Not Resolved]
  - Back pain [Not Recovered/Not Resolved]
  - Skin plaque [Not Recovered/Not Resolved]
